FAERS Safety Report 5284078-1 (Version None)
Quarter: 2007Q1

REPORT INFORMATION
  Report Type: 
  Country: None (occurrence: None)
  Receive Date: 20070327
  Receipt Date: 20070316
  Transmission Date: 20070707
  Serious: Yes (Hospitalization)
  Sender: FDA-Public Use
  Company Number: 238447

PATIENT
  Sex: Female

DRUGS (5)
  1. AVASTIN [Suspect]
     Indication: RECURRENT CANCER
     Dosage: UNK, UNK, INTRAVENOUS
     Route: 042
     Dates: start: 20070214
  2. OXALIPLATIN [Suspect]
     Indication: RECURRENT CANCER
     Dates: start: 20070130
  3. FLUOROURACIL [Suspect]
     Indication: RECURRENT CANCER
     Dosage: UNK, UNK, INTRAVENOUS
     Route: 042
     Dates: start: 20070130
  4. LEUCOVORIN CALCIUM [Suspect]
     Indication: RECURRENT CANCER
     Dosage: UNK, UNK, INTRAVENOUS
     Route: 042
     Dates: start: 20070130
  5. WARFARIN SODIUM [Concomitant]

REACTIONS (7)
  - ABDOMINAL PAIN LOWER [None]
  - ANAPHYLACTOID REACTION [None]
  - BLOOD GLUCOSE INCREASED [None]
  - FLUSHING [None]
  - OXYGEN SATURATION DECREASED [None]
  - TACHYCARDIA [None]
  - UTERINE HAEMORRHAGE [None]
